FAERS Safety Report 16064625 (Version 1)
Quarter: 2019Q1

REPORT INFORMATION
  Report Type: Report from Study
  Country: US (occurrence: US)
  Receive Date: 20190312
  Receipt Date: 20190312
  Transmission Date: 20190418
  Serious: Yes (Hospitalization)
  Sender: FDA-Public Use
  Company Number: US-PFIZER INC-2019104255

PATIENT
  Age: 58 Year
  Sex: Female

DRUGS (1)
  1. VERAPAMIL HCL [Suspect]
     Active Substance: VERAPAMIL HYDROCHLORIDE
     Dosage: 1440 MG, UNK
     Route: 048

REACTIONS (6)
  - Overdose [Unknown]
  - Hypotension [Unknown]
  - Skin laceration [Unknown]
  - Bradycardia [Unknown]
  - Atrioventricular block complete [Unknown]
  - Syncope [Unknown]
